FAERS Safety Report 13885212 (Version 2)
Quarter: 2017Q3

REPORT INFORMATION
  Report Type: Spontaneous
  Country: TR (occurrence: TR)
  Receive Date: 20170821
  Receipt Date: 20170904
  Transmission Date: 20171127
  Serious: Yes (Disabling, Other)
  Sender: FDA-Public Use
  Company Number: TR-ROCHE-1965417

PATIENT
  Age: 82 Year
  Sex: Male

DRUGS (3)
  1. LUCENTIS [Suspect]
     Active Substance: RANIBIZUMAB
     Indication: AGE-RELATED MACULAR DEGENERATION
     Dosage: IN THE LEFT EYE
     Route: 031
  2. LUCENTIS [Suspect]
     Active Substance: RANIBIZUMAB
     Dosage: IN THE LEFT EYE
     Route: 031
     Dates: start: 20170729
  3. LUCENTIS [Suspect]
     Active Substance: RANIBIZUMAB
     Dosage: IN THE LEFT EYE
     Route: 031
     Dates: start: 20170629

REACTIONS (2)
  - Endophthalmitis [Recovering/Resolving]
  - Blindness [Unknown]
